FAERS Safety Report 7628597-9 (Version None)
Quarter: 2011Q3

REPORT INFORMATION
  Report Type: 
  Country: None (occurrence: None)
  Receive Date: 20110722
  Receipt Date: 20110713
  Transmission Date: 20111222
  Serious: Yes (Other)
  Sender: FDA-Public Use
  Company Number: US-ABBOTT-11P-163-0730337-00

PATIENT
  Weight: 55.388 kg

DRUGS (1)
  1. HUMIRA [Suspect]
     Indication: CROHN'S DISEASE

REACTIONS (5)
  - MENINGITIS ASEPTIC [None]
  - CSF PROTEIN INCREASED [None]
  - IVTH NERVE PARALYSIS [None]
  - BLOOD GLUCOSE DECREASED [None]
  - WHITE BLOOD CELL COUNT INCREASED [None]
